FAERS Safety Report 9365119 (Version 1)
Quarter: 2013Q2

REPORT INFORMATION
  Report Type: Spontaneous
  Country: BR (occurrence: BR)
  Receive Date: 20130624
  Receipt Date: 20130624
  Transmission Date: 20140414
  Serious: Yes (Hospitalization)
  Sender: FDA-Public Use
  Company Number: BR-B.I. PHARMACEUTICALS,INC./RIDGEFIELD-2013-BR-00634BR

PATIENT
  Age: 53 Year
  Sex: Male
  Weight: 62 kg

DRUGS (6)
  1. SPIRIVA RESPIMAT [Suspect]
     Indication: DYSPNOEA
     Dosage: 5 MCG
     Route: 055
     Dates: start: 201209
  2. SPIRIVA RESPIMAT [Suspect]
     Indication: EMPHYSEMA
  3. ALENIA [Concomitant]
     Indication: EMPHYSEMA
     Dates: start: 201209
  4. LOSARTANA [Concomitant]
     Indication: HYPERTENSION
     Dates: start: 2011
  5. DIURIX [Concomitant]
     Indication: HYPERTENSION
     Dates: start: 2011
  6. NEXIUM [Concomitant]
     Indication: GASTRITIS
     Dates: start: 201301

REACTIONS (3)
  - Cough [Not Recovered/Not Resolved]
  - Asthenia [Not Recovered/Not Resolved]
  - Influenza [Not Recovered/Not Resolved]
